FAERS Safety Report 9897950 (Version 3)
Quarter: 2014Q1

REPORT INFORMATION
  Report Type: Spontaneous
  Country: US (occurrence: US)
  Receive Date: 20140214
  Receipt Date: 20140325
  Transmission Date: 20141002
  Serious: No
  Sender: FDA-Public Use
  Company Number: US-PFIZER INC-2014040618

PATIENT
  Age: 67 Year
  Sex: Female
  Weight: 45.35 kg

DRUGS (11)
  1. TIKOSYN [Suspect]
     Dosage: UNK
  2. OMEGA Q PLUS [Concomitant]
     Dosage: UNK
  3. FISH OIL [Concomitant]
     Dosage: UNK
  4. MAGNESIUM [Concomitant]
     Dosage: UNK
  5. POTASSIUM [Concomitant]
     Dosage: UNK
  6. FUROSEMIDE [Concomitant]
     Dosage: 20 MG (BY TAKING HALF TABLET OF 40MG), 1X/DAY
  7. NIACIN [Concomitant]
     Dosage: 250 MG, 1X/DAY
  8. LOSARTAN [Concomitant]
     Dosage: 25 MG, 1X/DAY
  9. CLOPIDOGREL [Concomitant]
     Indication: CARDIAC DISORDER
     Dosage: 75 MG, 1X/DAY
  10. ASPIRIN [Concomitant]
     Dosage: UNK, 1X/DAY
  11. CARVEDILOL [Concomitant]
     Dosage: 25 MG, 2X/DAY

REACTIONS (2)
  - Drug hypersensitivity [Unknown]
  - Drug ineffective [Unknown]
